FAERS Safety Report 6285925-7 (Version None)
Quarter: 2009Q3

REPORT INFORMATION
  Report Type: 
  Country: None (occurrence: None)
  Receive Date: 20090728
  Receipt Date: 20081215
  Transmission Date: 20100115
  Serious: No
  Sender: FDA-Public Use
  Company Number: A0760442A

PATIENT
  Age: 58 Year
  Sex: Male

DRUGS (3)
  1. DYAZIDE [Suspect]
     Indication: MENIERE'S DISEASE
     Route: 048
     Dates: start: 20081101
  2. MULTI-VITAMINS [Concomitant]
  3. PREVACID [Concomitant]

REACTIONS (2)
  - DYSGEUSIA [None]
  - GLOSSODYNIA [None]
